FAERS Safety Report 17175458 (Version 1)
Quarter: 2019Q4

REPORT INFORMATION
  Report Type: Spontaneous
  Country: US (occurrence: US)
  Receive Date: 20191126
  Receipt Date: 20191126
  Transmission Date: 20200122
  Serious: Yes (Hospitalization)
  Sender: FDA-Public Use
  Company Number: None

PATIENT
  Age: 32 Year
  Sex: Female
  Weight: 112 kg

DRUGS (1)
  1. OLANZAPINE. [Suspect]
     Active Substance: OLANZAPINE
     Dates: end: 20191107

REACTIONS (5)
  - Cough [None]
  - Febrile neutropenia [None]
  - Dyspnoea [None]
  - Pulmonary congestion [None]
  - Chest pain [None]

NARRATIVE: CASE EVENT DATE: 20191111
